FAERS Safety Report 4630820-X (Version None)
Quarter: 2005Q2

REPORT INFORMATION
  Report Type: 
  Country: None (occurrence: None)
  Receive Date: 20050408
  Receipt Date: 20050404
  Transmission Date: 20051028
  Serious: Yes (Other)
  Sender: FDA-Public Use
  Company Number: US-BRISTOL-MYERS SQUIBB COMPANY-12919429

PATIENT
  Age: 48 Year
  Sex: Male

DRUGS (5)
  1. CYCLOPHOSPHAMIDE [Suspect]
     Indication: LYMPHOMA
  2. DOXORUBICIN HCL [Suspect]
     Indication: LYMPHOMA
  3. VINCRISTINE [Suspect]
     Indication: LYMPHOMA
  4. PREDNISONE [Suspect]
     Indication: LYMPHOMA
  5. RITUXIMAB [Suspect]
     Indication: LYMPHOMA
     Dosage: 2 DAYS PRIOR TO CHOP X 2 CYCLES AFTER COMPLETE RESPONSE; TWO ADD'L DOSES AT END OF 4 CHOP CYCLES

REACTIONS (1)
  - HYPOGAMMAGLOBULINAEMIA [None]
